FAERS Safety Report 5386951-2 (Version None)
Quarter: 2007Q3

REPORT INFORMATION
  Report Type: 
  Country: None (occurrence: None)
  Receive Date: 20070713
  Receipt Date: 20070701
  Transmission Date: 20080115
  Serious: Yes (Hospitalization, Other)
  Sender: FDA-Public Use
  Company Number: US-PFIZER INC-2007054920

PATIENT
  Sex: Female

DRUGS (2)
  1. LYRICA [Suspect]
  2. TRAMADOL HCL [Suspect]

REACTIONS (4)
  - DISTURBANCE IN ATTENTION [None]
  - MALAISE [None]
  - UNEVALUABLE EVENT [None]
  - VISUAL DISTURBANCE [None]
